FAERS Safety Report 10390943 (Version 1)
Quarter: 2014Q3

REPORT INFORMATION
  Report Type: Spontaneous
  Country: FR (occurrence: FR)
  Receive Date: 20140818
  Receipt Date: 20140818
  Transmission Date: 20150326
  Serious: Yes (Hospitalization)
  Sender: FDA-Public Use
  Company Number: FR-BRISTOL-MYERS SQUIBB COMPANY-21290309

PATIENT
  Age: 90 Year
  Sex: Female

DRUGS (11)
  1. OXYGEN. [Concomitant]
     Active Substance: OXYGEN
  2. LASILIX [Concomitant]
     Active Substance: FUROSEMIDE
  3. SERETIDE [Concomitant]
     Active Substance: FLUTICASONE FUROATE\SALMETEROL XINAFOATE
  4. IMOVANE [Concomitant]
     Active Substance: ZOPICLONE
  5. DIFFU-K [Concomitant]
     Active Substance: POTASSIUM CHLORIDE
  6. MIANSERIN [Concomitant]
     Active Substance: MIANSERIN
  7. AERIUS [Concomitant]
     Active Substance: DESLORATADINE
  8. ALPRAZOLAM. [Concomitant]
     Active Substance: ALPRAZOLAM
  9. COUMADINE [Suspect]
     Active Substance: WARFARIN SODIUM
     Indication: ATRIAL FIBRILLATION
     Dosage: REDUCED DOSE:1 MG EVENING
     Route: 048
  10. NEBIVOLOL [Concomitant]
     Active Substance: NEBIVOLOL
  11. SINGULAIR [Concomitant]
     Active Substance: MONTELUKAST SODIUM

REACTIONS (4)
  - Dehydration [None]
  - International normalised ratio increased [Recovered/Resolved]
  - Epistaxis [Recovered/Resolved]
  - Acute pulmonary oedema [Unknown]

NARRATIVE: CASE EVENT DATE: 20140606
